FAERS Safety Report 5913383-8 (Version None)
Quarter: 2008Q4

REPORT INFORMATION
  Report Type: 
  Country: None (occurrence: None)
  Receive Date: 20081009
  Receipt Date: 20081001
  Transmission Date: 20090506
  Serious: Yes (Hospitalization)
  Sender: FDA-Public Use
  Company Number: PHHY2008JP22626

PATIENT
  Age: 31 Year
  Sex: Female

DRUGS (12)
  1. TEGRETOL [Suspect]
     Indication: ELECTROENCEPHALOGRAM ABNORMAL
     Dosage: 400 MG/DAY
     Route: 048
  2. TEGRETOL [Suspect]
     Dosage: 200 MG/DAY
     Route: 048
  3. ZONEGRAN [Suspect]
     Dosage: 400 MG
  4. RISPERIDONE [Suspect]
     Dosage: 9 MG
  5. RISPERIDONE [Suspect]
     Dosage: 6 MG
  6. RISPERIDONE [Suspect]
     Dosage: 9 MG
  7. RISPERIDONE [Suspect]
     Dosage: 6 MG
  8. ACETAZOLAMIDE [Suspect]
     Dosage: 750 MG
  9. HALOPERIDOL [Suspect]
     Dosage: 5 MG
  10. HALOPERIDOL [Suspect]
     Dosage: 12 MG
     Route: 048
  11. HALOPERIDOL [Suspect]
     Dosage: 6 MG
  12. HALOPERIDOL [Suspect]

REACTIONS (13)
  - ANGER [None]
  - ASTERIXIS [None]
  - CATATONIA [None]
  - DEPRESSED LEVEL OF CONSCIOUSNESS [None]
  - DISORIENTATION [None]
  - ELECTROENCEPHALOGRAM ABNORMAL [None]
  - HALLUCINATION [None]
  - METABOLIC ENCEPHALOPATHY [None]
  - MOVEMENT DISORDER [None]
  - PERSECUTORY DELUSION [None]
  - PSYCHIATRIC SYMPTOM [None]
  - PSYCHOMOTOR HYPERACTIVITY [None]
  - TREATMENT NONCOMPLIANCE [None]
